FAERS Safety Report 11434622 (Version 6)
Quarter: 2015Q4

REPORT INFORMATION
  Report Type: Spontaneous
  Country: US (occurrence: US)
  Receive Date: 20150831
  Receipt Date: 20151103
  Transmission Date: 20160304
  Serious: Yes (Death, Hospitalization, Other)
  Sender: FDA-Public Use
  Company Number: US-ACTELION-A-US2015-123100

PATIENT
  Age: 61 Year
  Sex: Female

DRUGS (5)
  1. VELETRI [Suspect]
     Active Substance: EPOPROSTENOL
     Indication: PULMONARY ARTERIAL HYPERTENSION
     Dosage: 22 NG/KG, PER MIN
     Route: 042
     Dates: start: 201507, end: 20151013
  2. VELETRI [Suspect]
     Active Substance: EPOPROSTENOL
     Dosage: 8 NG/KG, PER MIN
     Route: 042
     Dates: start: 201508, end: 201509
  3. VELETRI [Suspect]
     Active Substance: EPOPROSTENOL
     Dosage: 14 NG/KG, PER MIN
     Route: 042
     Dates: start: 201509
  4. VELETRI [Suspect]
     Active Substance: EPOPROSTENOL
     Dosage: 8 NG/KG, PER MIN
     Route: 042
     Dates: end: 20151013
  5. VIAGRA [Concomitant]
     Active Substance: SILDENAFIL CITRATE

REACTIONS (15)
  - Multi-organ failure [Fatal]
  - Hepatic failure [Recovered/Resolved with Sequelae]
  - Thrombosis in device [Recovered/Resolved with Sequelae]
  - Respiratory rate increased [Recovered/Resolved with Sequelae]
  - Pneumonia aspiration [Recovered/Resolved with Sequelae]
  - Alanine aminotransferase increased [Recovered/Resolved with Sequelae]
  - Blood alkaline phosphatase increased [Recovered/Resolved with Sequelae]
  - Dyspnoea [Recovered/Resolved with Sequelae]
  - Aspartate aminotransferase increased [Recovered/Resolved with Sequelae]
  - Sepsis [Recovered/Resolved with Sequelae]
  - Device alarm issue [Recovered/Resolved]
  - Condition aggravated [Unknown]
  - Renal failure [Recovered/Resolved with Sequelae]
  - Mechanical ventilation [Unknown]
  - Pulmonary arterial hypertension [Unknown]

NARRATIVE: CASE EVENT DATE: 20150818
